FAERS Safety Report 4603324-8 (Version None)
Quarter: 2005Q1

REPORT INFORMATION
  Report Type: 
  Country: None (occurrence: None)
  Receive Date: 20050307
  Receipt Date: 20050222
  Transmission Date: 20050727
  Serious: Yes (Other)
  Sender: FDA-Public Use
  Company Number: 2005036301

PATIENT
  Age: 68 Year
  Sex: Female

DRUGS (11)
  1. DIFLUCAN [Suspect]
     Indication: ILL-DEFINED DISORDER
     Dosage: 200 MG, INTRAVENOUS
     Route: 042
  2. ASPIRIN [Concomitant]
  3. ATORVASTATIN CALCIUM [Concomitant]
  4. CHLORHEXIDINE GLUCONATE [Concomitant]
  5. POTASSIUM CHLORIDE [Concomitant]
  6. MEROPENEM (MEROPENEM) [Concomitant]
  7. PSYLLIUM HYDROPHILIC MUCILLOID (PSYLLIUM HYDROPHILIC MUCILLOID) [Concomitant]
  8. RANITIDINE [Concomitant]
  9. LEVOTHYROXINE SODIUM [Concomitant]
  10. VANCOMYCIN [Concomitant]
  11. AMIODARONE HCL [Concomitant]

REACTIONS (4)
  - ALANINE AMINOTRANSFERASE INCREASED [None]
  - HAEMODIALYSIS [None]
  - LIVER FUNCTION TEST ABNORMAL [None]
  - RENAL IMPAIRMENT [None]
